FAERS Safety Report 25697791 (Version 1)
Quarter: 2025Q3

REPORT INFORMATION
  Report Type: Spontaneous
  Country: EU (occurrence: EU)
  Receive Date: 20250819
  Receipt Date: 20250819
  Transmission Date: 20251020
  Serious: Yes (Hospitalization)
  Sender: EMD SERONO INC
  Company Number: None

PATIENT
  Age: 78 Year
  Sex: Female

DRUGS (7)
  1. METFORMIN HYDROCHLORIDE [Suspect]
     Active Substance: METFORMIN HYDROCHLORIDE
     Indication: Wrong patient received product
     Dates: start: 20250714, end: 20250714
  2. RISPERIDONE [Suspect]
     Active Substance: RISPERIDONE
     Indication: Wrong patient received product
     Dates: start: 20250714, end: 20250714
  3. RAMIPRIL [Suspect]
     Active Substance: RAMIPRIL
     Indication: Wrong patient received product
     Dates: start: 20250714, end: 20250714
  4. OXAZEPAM [Suspect]
     Active Substance: OXAZEPAM
     Indication: Wrong patient received product
     Dates: start: 20250714, end: 20250714
  5. FLECAINIDE [Suspect]
     Active Substance: FLECAINIDE
     Indication: Wrong patient received product
     Dates: start: 20250714, end: 20250714
  6. TROPATEPINE HYDROCHLORIDE [Suspect]
     Active Substance: TROPATEPINE HYDROCHLORIDE
     Indication: Wrong patient received product
     Dates: start: 20250714, end: 20250714
  7. FLUOXETINE HYDROCHLORIDE [Suspect]
     Active Substance: FLUOXETINE HYDROCHLORIDE
     Indication: Wrong patient received product
     Dates: start: 20250714, end: 20250714

REACTIONS (3)
  - Hypotension [Recovered/Resolved]
  - Somnolence [Recovered/Resolved]
  - Wrong patient received product [Recovered/Resolved]

NARRATIVE: CASE EVENT DATE: 20250714
